FAERS Safety Report 12543873 (Version 1)
Quarter: 2016Q3

REPORT INFORMATION
  Report Type: Spontaneous
  Country: CN (occurrence: CN)
  Receive Date: 20160711
  Receipt Date: 20160711
  Transmission Date: 20161109
  Serious: Yes (Other)
  Sender: FDA-Public Use
  Company Number: CN-ACCORD-042267

PATIENT
  Age: 44 Year
  Sex: Male

DRUGS (3)
  1. IFOSFAMIDE. [Suspect]
     Active Substance: IFOSFAMIDE
     Indication: NEUROBLASTOMA
     Dosage: ONCE A DAY, 3 G DAILY FOR 5 DAYS AND FOR 3 COURSES
     Route: 042
  2. CISPLATIN. [Suspect]
     Active Substance: CISPLATIN
     Indication: NEUROBLASTOMA
     Dosage: ONCE A DAY, 45 G DAILY FOR 3 DAYS AND 3 COURSES
     Route: 042
  3. ETOPOSIDE. [Suspect]
     Active Substance: ETOPOSIDE
     Indication: NEUROBLASTOMA
     Dosage: ONCE A DAY, 0.11 G DAILY FOR 5 DAYS 3 COURSES
     Route: 042

REACTIONS (7)
  - Nausea [Unknown]
  - Mouth ulceration [Unknown]
  - Arthralgia [Unknown]
  - Drug intolerance [Unknown]
  - Alopecia [Unknown]
  - Vomiting [Unknown]
  - Treatment failure [Unknown]
